FAERS Safety Report 8002910-5 (Version None)
Quarter: 2011Q4

REPORT INFORMATION
  Report Type: 
  Country: None (occurrence: None)
  Receive Date: 20111222
  Receipt Date: 20110315
  Transmission Date: 20120403
  Serious: No
  Sender: FDA-Public Use
  Company Number: US-GLAXOSMITHKLINE-A0918301A

PATIENT
  Age: 29 Year
  Sex: Male

DRUGS (2)
  1. AVODART [Suspect]
     Indication: ALOPECIA
     Dosage: 1CAP EVERY 3 DAYS
     Route: 048
     Dates: start: 20110101, end: 20110301
  2. NO CONCURRENT MEDICATION [Concomitant]

REACTIONS (3)
  - LIP SWELLING [None]
  - RASH [None]
  - EYE SWELLING [None]
